APPROVED DRUG PRODUCT: KENALOG-10
Active Ingredient: TRIAMCINOLONE ACETONIDE
Strength: 10MG/ML
Dosage Form/Route: INJECTABLE;INJECTION
Application: N012041 | Product #001 | TE Code: AB
Applicant: APOTHECON INC DIV BRISTOL MYERS SQUIBB
Approved: Approved Prior to Jan 1, 1982 | RLD: Yes | RS: Yes | Type: RX